FAERS Safety Report 21644962 (Version 1)
Quarter: 2022Q4

REPORT INFORMATION
  Report Type: Report from Study
  Country: US (occurrence: US)
  Receive Date: 20221125
  Receipt Date: 20221125
  Transmission Date: 20230113
  Serious: No
  Sender: FDA-Public Use
  Company Number: US-ABBVIE-4212064

PATIENT
  Sex: Female

DRUGS (7)
  1. IMBRUVICA [Suspect]
     Active Substance: IBRUTINIB
     Indication: Chronic lymphocytic leukaemia
     Route: 048
  2. Losartan Potassium Oral Tablet 25 MG [Concomitant]
     Indication: Product used for unknown indication
  3. MYRBETRIQ [Concomitant]
     Active Substance: MIRABEGRON
     Indication: Product used for unknown indication
  4. metFORMIN HCl Oral Tablet 500 MG [Concomitant]
     Indication: Product used for unknown indication
  5. Vivelle-Dot Transdermal Patch [Concomitant]
     Indication: Product used for unknown indication
  6. Vitamin D3 Oral Capsule 50 MCG [Concomitant]
     Indication: Product used for unknown indication
  7. PreserVision AREDS 2 Oral Capsule [Concomitant]
     Indication: Product used for unknown indication

REACTIONS (2)
  - Hypertonic bladder [Recovering/Resolving]
  - Diarrhoea [Unknown]
